FAERS Safety Report 8614112-X (Version None)
Quarter: 2012Q3

REPORT INFORMATION
  Report Type: 
  Country: None (occurrence: None)
  Receive Date: 20120823
  Receipt Date: 20120814
  Transmission Date: 20120928
  Serious: Yes (Hospitalization)
  Sender: FDA-Public Use
  Company Number: US-BAYER-2012-082904

PATIENT
  Age: 19 Year
  Sex: Female

DRUGS (8)
  1. FLONASE [Concomitant]
     Dosage: UNK
     Dates: start: 20080104
  2. LORTAB [Concomitant]
     Indication: PAIN
     Dosage: 5 MG, TAKE 1 TO 2 EVERY 6 HOURS AS NEEDED
     Route: 048
     Dates: start: 20080104
  3. PERCOCET [Concomitant]
     Dosage: 5 MG 325
     Route: 048
     Dates: start: 20080104
  4. MOTRIN [Concomitant]
     Dosage: 400 MG MAY TAKE 2-3 PILLS, THREE TIMES A DAY FOR UP TO A WEEK
     Route: 048
     Dates: start: 20080104
  5. YAZ [Suspect]
     Dosage: UNK
     Dates: start: 20060801
  6. MIDRIN [Concomitant]
     Dosage: UNK
     Dates: start: 20080104
  7. ALLEGRA [Concomitant]
     Dosage: UNK
     Dates: start: 20080105
  8. VALIUM [Concomitant]
     Dosage: 5 MG, UNK
     Route: 048
     Dates: start: 20080104

REACTIONS (3)
  - PAIN [None]
  - PULMONARY EMBOLISM [None]
  - INJURY [None]
